FAERS Safety Report 23790862 (Version 1)
Quarter: 2024Q2

REPORT INFORMATION
  Report Type: Spontaneous
  Country: IN (occurrence: IN)
  Receive Date: 20240427
  Receipt Date: 20240427
  Transmission Date: 20240716
  Serious: Yes (Death)
  Sender: FDA-Public Use
  Company Number: IN-NOVITIUMPHARMA-2024INNVP00613

PATIENT
  Age: 17 Year
  Sex: Male

DRUGS (5)
  1. PREDNISONE [Suspect]
     Active Substance: PREDNISONE
     Indication: T-cell type acute leukaemia
  2. CYCLOPHOSPHAMIDE [Concomitant]
     Active Substance: CYCLOPHOSPHAMIDE
     Indication: T-cell type acute leukaemia
  3. DOXORUBICIN [Concomitant]
     Active Substance: DOXORUBICIN
     Indication: T-cell type acute leukaemia
  4. VINCRISTINE [Concomitant]
     Active Substance: VINCRISTINE
     Indication: T-cell type acute leukaemia
  5. TRAMETINIB [Concomitant]
     Active Substance: TRAMETINIB
     Indication: T-cell type acute leukaemia

REACTIONS (1)
  - Drug ineffective [Fatal]
